FAERS Safety Report 8477469-9 (Version None)
Quarter: 2012Q2

REPORT INFORMATION
  Report Type: 
  Country: None (occurrence: None)
  Receive Date: 20120629
  Receipt Date: 20120625
  Transmission Date: 20120825
  Serious: Yes (Other)
  Sender: FDA-Public Use
  Company Number: PHHY2011MX42700

PATIENT
  Age: 64 Year
  Sex: Female

DRUGS (2)
  1. ZOLEDRONOC ACID [Suspect]
     Indication: OSTEOPOROSIS
     Dosage: 5 MG/100 ML YEARLY
     Route: 042
     Dates: start: 20061231
  2. IRBESARTAN AND HYDROCHLOROTHIAZIDE [Concomitant]
     Dosage: 1 DF, QD

REACTIONS (5)
  - RENAL DISORDER [None]
  - GASTRITIS [None]
  - AMOEBIASIS [None]
  - PANCREATIC DISORDER [None]
  - LIVER DISORDER [None]
